FAERS Safety Report 5726894-5 (Version None)
Quarter: 2008Q2

REPORT INFORMATION
  Report Type: 
  Country: None (occurrence: None)
  Receive Date: 20080502
  Receipt Date: 20080424
  Transmission Date: 20081010
  Serious: Yes (Disabling)
  Sender: FDA-Public Use
  Company Number: GB-PFIZER INC-2008036701

PATIENT
  Age: 35 Year
  Sex: Male
  Weight: 106 kg

DRUGS (5)
  1. CARDURA [Suspect]
     Indication: HYPERTENSION
     Route: 048
     Dates: start: 20011126, end: 20071105
  2. AZATHIOPRINE [Concomitant]
     Indication: TAKAYASU'S ARTERITIS
  3. FOLIC ACID [Concomitant]
     Route: 048
  4. METHOTREXATE [Concomitant]
     Indication: TAKAYASU'S ARTERITIS
     Route: 048
  5. PREDNISOLONE [Concomitant]
     Route: 048

REACTIONS (1)
  - ERYTHEMA NODOSUM [None]
